FAERS Safety Report 10374441 (Version 10)
Quarter: 2015Q1

REPORT INFORMATION
  Report Type: Report from Study
  Country: CA (occurrence: CA)
  Receive Date: 20140811
  Receipt Date: 20150130
  Transmission Date: 20150720
  Serious: Yes (Other)
  Sender: FDA-Public Use
  Company Number: CA-ROCHE-1314429

PATIENT
  Age: 62 Year
  Sex: Female

DRUGS (11)
  1. AMLODIPINE [Concomitant]
     Active Substance: AMLODIPINE BESYLATE
  2. IRINOTECAN [Concomitant]
     Active Substance: IRINOTECAN
  3. XELODA [Suspect]
     Active Substance: CAPECITABINE
     Indication: COLORECTAL CANCER
     Dosage: DISCONTINUED ON UNKNOWN DATE
     Route: 048
     Dates: start: 201104
  4. AVASTIN [Suspect]
     Active Substance: BEVACIZUMAB
     Indication: COLORECTAL CANCER
     Route: 042
     Dates: start: 201302
  5. AVASTIN [Suspect]
     Active Substance: BEVACIZUMAB
     Dosage: FIRST RPAP DOSE
     Route: 042
     Dates: start: 20131219
  6. AVASTIN [Suspect]
     Active Substance: BEVACIZUMAB
     Route: 042
     Dates: start: 20140812, end: 20150106
  7. MORPHINE [Suspect]
     Active Substance: MORPHINE
     Indication: PRODUCT USED FOR UNKNOWN INDICATION
     Route: 065
  8. CHLORTHALIDONE. [Suspect]
     Active Substance: CHLORTHALIDONE
     Indication: PRODUCT USED FOR UNKNOWN INDICATION
     Route: 065
  9. FLUOROURACIL. [Concomitant]
     Active Substance: FLUOROURACIL
  10. OLMETEC [Suspect]
     Active Substance: OLMESARTAN MEDOXOMIL
     Indication: BLOOD PRESSURE
     Route: 065
  11. FOLINIC ACID [Concomitant]
     Active Substance: LEUCOVORIN

REACTIONS (14)
  - Haemoglobin decreased [Not Recovered/Not Resolved]
  - Renal impairment [Unknown]
  - Drug intolerance [Not Recovered/Not Resolved]
  - Protein urine present [Unknown]
  - Hypertension [Not Recovered/Not Resolved]
  - Nasopharyngitis [Not Recovered/Not Resolved]
  - Blood urine present [Unknown]
  - Hypotension [Recovering/Resolving]
  - Fatigue [Unknown]
  - Malignant neoplasm progression [Unknown]
  - Malaise [Unknown]
  - Weight decreased [Not Recovered/Not Resolved]
  - Cystitis [Unknown]
  - Pyrexia [Not Recovered/Not Resolved]

NARRATIVE: CASE EVENT DATE: 201304
